FAERS Safety Report 13914323 (Version 1)
Quarter: 2017Q3

REPORT INFORMATION
  Report Type: Spontaneous
  Country: US (occurrence: US)
  Receive Date: 20170828
  Receipt Date: 20170828
  Transmission Date: 20171127
  Serious: No
  Sender: FDA-Public Use
  Company Number: US-ROCHE-1141062

PATIENT
  Sex: Female
  Weight: 81.4 kg

DRUGS (8)
  1. ESTINYL [Concomitant]
     Active Substance: ETHINYL ESTRADIOL
     Route: 048
  2. ESTRACE [Concomitant]
     Active Substance: ESTRADIOL
     Route: 065
  3. SYNTHROID [Concomitant]
     Active Substance: LEVOTHYROXINE SODIUM
     Route: 048
  4. ZYBAN [Concomitant]
     Active Substance: BUPROPION HYDROCHLORIDE
  5. SPIRONOLACTONE. [Concomitant]
     Active Substance: SPIRONOLACTONE
     Route: 048
  6. NUTROPIN AQ [Suspect]
     Active Substance: SOMATROPIN
     Indication: GROWTH HORMONE DEFICIENCY
     Dosage: DOSE PER INJECTION 0.1 ML
     Route: 065
  7. ZOLOFT [Concomitant]
     Active Substance: SERTRALINE HYDROCHLORIDE
     Route: 048
  8. ESTRACE [Concomitant]
     Active Substance: ESTRADIOL
     Route: 048

REACTIONS (4)
  - Alopecia [Unknown]
  - Dry skin [Unknown]
  - Swelling [Unknown]
  - Pain in extremity [Unknown]
